FAERS Safety Report 8490766 (Version 2)
Quarter: 2015Q3

REPORT INFORMATION
  Report Type: Spontaneous
  Country: US (occurrence: US)
  Receive Date: 20120403
  Receipt Date: 20150831
  Transmission Date: 20151125
  Serious: Yes (Other)
  Sender: FDA-Public Use
  Company Number: US-PFIZER INC-2012079362

PATIENT
  Age: 53 Year
  Sex: Female
  Weight: 63.95 kg

DRUGS (1)
  1. HEPARIN SODIUM BOVINE [Suspect]
     Active Substance: HEPARIN SODIUM, BOVINE
     Dosage: UNK

REACTIONS (2)
  - Heparin-induced thrombocytopenia [Unknown]
  - Drug hypersensitivity [Unknown]
